FAERS Safety Report 12604356 (Version 1)
Quarter: 2016Q3

REPORT INFORMATION
  Report Type: Spontaneous
  Country: US (occurrence: US)
  Receive Date: 20160728
  Receipt Date: 20160728
  Transmission Date: 20161109
  Serious: Yes (Other)
  Sender: FDA-Public Use
  Company Number: US-SA-2016SA133544

PATIENT
  Age: 86 Year
  Sex: Male

DRUGS (2)
  1. SOLOSTAR [Concomitant]
     Active Substance: DEVICE
  2. LANTUS SOLOSTAR [Suspect]
     Active Substance: INSULIN GLARGINE
     Indication: DIABETES MELLITUS
     Dosage: DOSE:33 UNIT(S)
     Route: 065

REACTIONS (4)
  - Glaucoma [Unknown]
  - Thinking abnormal [Unknown]
  - Malaise [Unknown]
  - Incorrect product storage [Unknown]
